FAERS Safety Report 24216795 (Version 1)
Quarter: 2024Q3

REPORT INFORMATION
  Report Type: Spontaneous
  Country: CN (occurrence: CN)
  Receive Date: 20240816
  Receipt Date: 20240816
  Transmission Date: 20241017
  Serious: Yes (Life-Threatening, Other)
  Sender: Teyro Labs
  Company Number: CN-TEYRO-2024-TY-000429

PATIENT
  Age: 49 Year
  Sex: Female

DRUGS (23)
  1. CARBOPLATIN [Suspect]
     Active Substance: CARBOPLATIN
     Indication: Serous cystadenocarcinoma ovary
     Dosage: 2 CYCLES, AREA UNDER THE CURVE 5 ON DAY 1, EVERY 21 DAYS
     Route: 065
     Dates: start: 201911, end: 201912
  2. CARBOPLATIN [Suspect]
     Active Substance: CARBOPLATIN
     Indication: Serous cystadenocarcinoma ovary
     Dosage: 3 CYCLE, AUC=5 ON DAY 1, EVERY 21 DAYS
     Route: 042
     Dates: start: 202004, end: 202006
  3. CARBOPLATIN [Suspect]
     Active Substance: CARBOPLATIN
     Indication: Serous cystadenocarcinoma ovary
     Dosage: 1 CYCLE, AUC=5 ON DAY 1, EVERY 21 DAYS
     Route: 065
  4. CARBOPLATIN [Suspect]
     Active Substance: CARBOPLATIN
     Indication: Ovarian epithelial cancer stage IV
     Dosage: 4CYCLE, AUC=5 ON DAY 1, EVERY 21 DAYS
     Route: 065
     Dates: start: 202108, end: 202110
  5. CARBOPLATIN [Suspect]
     Active Substance: CARBOPLATIN
     Dosage: 6CYCLE, AUC=5 ON DAY 1, EVERY 21 DAYS
     Route: 065
     Dates: start: 202206, end: 202210
  6. PACLITAXEL [Suspect]
     Active Substance: PACLITAXEL
     Indication: Serous cystadenocarcinoma ovary
     Dosage: 2 CYCLES, 175 MG/M2 ON DAY 1 EVERY 21 DAYS
     Route: 065
     Dates: start: 201911, end: 201912
  7. PACLITAXEL [Suspect]
     Active Substance: PACLITAXEL
     Indication: Serous cystadenocarcinoma ovary
     Dosage: 3 CYCLE, 175 MG/M2 ON DAY 1 EVERY 21 DAYS
     Route: 065
     Dates: start: 202001, end: 202003
  8. PACLITAXEL [Suspect]
     Active Substance: PACLITAXEL
     Indication: Serous cystadenocarcinoma ovary
     Dosage: 3 CYCLES, 175 MG/M2 ON DAY 1 EVERY 21 DAYS
     Route: 065
     Dates: start: 202004, end: 202006
  9. PACLITAXEL [Suspect]
     Active Substance: PACLITAXEL
     Indication: Ovarian epithelial cancer stage IV
     Dosage: 1 CYCLE, 175 MG/M2 ON DAY 1, EVERY 21 DAYS
     Route: 065
  10. PACLITAXEL [Suspect]
     Active Substance: PACLITAXEL
     Dosage: 4 CYCLE, 175 MG/M2 ON DAY 1, EVERY 21 DAYS
     Route: 065
     Dates: start: 202108, end: 202110
  11. PACLITAXEL [Suspect]
     Active Substance: PACLITAXEL
     Dosage: 6 CYCLE, 175 MG/M2 ON DAY 1, EVERY 21 DAYS
     Route: 065
     Dates: start: 202206, end: 202210
  12. CISPLATIN [Suspect]
     Active Substance: CISPLATIN
     Indication: Serous cystadenocarcinoma ovary
     Dosage: 3 CYCLES, 75 MG/M2 ON DAY 2, EVERY 21 DAYS
     Route: 065
     Dates: start: 202001, end: 202003
  13. CISPLATIN [Suspect]
     Active Substance: CISPLATIN
     Indication: Serous cystadenocarcinoma ovary
  14. CISPLATIN [Suspect]
     Active Substance: CISPLATIN
     Indication: Serous cystadenocarcinoma ovary
  15. CISPLATIN [Suspect]
     Active Substance: CISPLATIN
     Indication: Ovarian epithelial cancer stage IV
  16. BEVACIZUMAB [Suspect]
     Active Substance: BEVACIZUMAB
     Indication: Serous cystadenocarcinoma ovary
     Dosage: 1 CYCLE, 7.5 MG/KG, EVERY 21 DAYS
     Route: 065
  17. BEVACIZUMAB [Suspect]
     Active Substance: BEVACIZUMAB
     Indication: Metastases to skin
     Dosage: 4 CYCLE, 7.5 MG/KG, EVERY 21 DAYS
     Route: 065
     Dates: start: 202108, end: 202110
  18. BEVACIZUMAB [Suspect]
     Active Substance: BEVACIZUMAB
     Indication: Serous cystadenocarcinoma ovary
     Dosage: 6CYCLE, 7.5 MG/KG, EVERY 21 DAYS
     Route: 065
     Dates: start: 202206, end: 202210
  19. BEVACIZUMAB [Suspect]
     Active Substance: BEVACIZUMAB
     Indication: Ovarian epithelial cancer stage IV
  20. FLUZOPARIB [Concomitant]
     Active Substance: FLUZOPARIB
     Dosage: 150 MG PER ORAL BID
     Route: 048
  21. FLUZOPARIB [Concomitant]
     Active Substance: FLUZOPARIB
     Dosage: ORAL
     Route: 048
  22. FLUZOPARIB [Concomitant]
     Active Substance: FLUZOPARIB
  23. FLUZOPARIB [Concomitant]
     Active Substance: FLUZOPARIB

REACTIONS (6)
  - Gastrointestinal disorder [Unknown]
  - Drug resistance [Unknown]
  - Neoplasm progression [Unknown]
  - Myelosuppression [Not Recovered/Not Resolved]
  - Therapy partial responder [Unknown]
  - Off label use [Unknown]
